FAERS Safety Report 19881605 (Version 2)
Quarter: 2021Q4

REPORT INFORMATION
  Report Type: Spontaneous
  Country: CN (occurrence: CN)
  Receive Date: 20210924
  Receipt Date: 20211019
  Transmission Date: 20220303
  Serious: Yes (Hospitalization, Other)
  Sender: FDA-Public Use
  Company Number: 2021A736367

PATIENT
  Age: 75 Year
  Sex: Male
  Weight: 52 kg

DRUGS (1)
  1. TAGRISSO [Suspect]
     Active Substance: OSIMERTINIB
     Indication: Lung neoplasm malignant
     Route: 048
     Dates: start: 20210425

REACTIONS (3)
  - Malignant neoplasm progression [Not Recovered/Not Resolved]
  - Metastases to bone [Unknown]
  - Drug resistance [Unknown]
